FAERS Safety Report 7797037-1 (Version None)
Quarter: 2011Q4

REPORT INFORMATION
  Report Type: 
  Country: None (occurrence: None)
  Receive Date: 20111005
  Receipt Date: 20110929
  Transmission Date: 20120403
  Serious: Yes (Death, Other)
  Sender: FDA-Public Use
  Company Number: US-SANOFI-AVENTIS-2011SA063906

PATIENT
  Sex: Male

DRUGS (5)
  1. JEVTANA KIT [Suspect]
     Indication: PROSTATE CANCER
     Route: 041
     Dates: start: 20100710, end: 20100710
  2. JEVTANA KIT [Suspect]
     Route: 041
     Dates: start: 20100721, end: 20100721
  3. JEVTANA KIT [Suspect]
     Route: 041
     Dates: start: 20100815, end: 20100815
  4. HORMONES AND RELATED AGENTS [Concomitant]
     Indication: PROSTATE CANCER
     Dates: end: 20100101
  5. JEVTANA KIT [Suspect]
     Route: 041
     Dates: start: 20100907, end: 20100907

REACTIONS (2)
  - DEATH [None]
  - PROSTATIC SPECIFIC ANTIGEN INCREASED [None]
